FAERS Safety Report 7700943-7 (Version None)
Quarter: 2011Q3

REPORT INFORMATION
  Report Type: 
  Country: None (occurrence: None)
  Receive Date: 20110822
  Receipt Date: 20110819
  Transmission Date: 20111222
  Serious: Yes (Other)
  Sender: FDA-Public Use
  Company Number: US-PFIZER INC-2011192386

PATIENT
  Sex: Female

DRUGS (2)
  1. NICOTROL [Suspect]
     Dosage: UNK
  2. CHANTIX [Suspect]
     Dosage: UNK

REACTIONS (3)
  - HOMICIDAL IDEATION [None]
  - ANGER [None]
  - VIOLENCE-RELATED SYMPTOM [None]
